FAERS Safety Report 4915168-8 (Version None)
Quarter: 2006Q1

REPORT INFORMATION
  Report Type: 
  Country: None (occurrence: None)
  Receive Date: 20060216
  Receipt Date: 20060216
  Transmission Date: 20060701
  Serious: Yes (Hospitalization)
  Sender: FDA-Public Use
  Company Number: None

PATIENT
  Sex: Male
  Weight: 83.4619 kg

DRUGS (8)
  1. NAPROXEN [Suspect]
     Indication: PAIN
     Dosage: UNKNOWN, PO
     Route: 048
  2. AVAPRO [Concomitant]
  3. LIPITOR [Concomitant]
  4. AMARYL [Concomitant]
  5. AVANDIA [Concomitant]
  6. FOSINOPRIL SODIUM [Concomitant]
  7. VERAPAMIL [Concomitant]
  8. METOPROLOL [Concomitant]

REACTIONS (4)
  - BURNING SENSATION [None]
  - EYELID DISORDER [None]
  - EYELIDS PRURITUS [None]
  - PRURITUS [None]
